FAERS Safety Report 8871176 (Version 1)
Quarter: 2012Q4

REPORT INFORMATION
  Report Type: 
  Country: US (occurrence: US)
  Receive Date: 20121026
  Receipt Date: 20121026
  Transmission Date: 20130627
  Serious: No
  Sender: FDA-Public Use
  Company Number: US-AMGEN-USASP2012048062

PATIENT
  Sex: Female
  Weight: 100.68 kg

DRUGS (10)
  1. ENBREL [Suspect]
     Indication: PSORIASIS
     Dosage: 50 mg, qwk
     Route: 058
  2. CENTRUM /02217401/ [Concomitant]
     Dosage: UNK
  3. XALATAN [Concomitant]
     Dosage: 0.005 %, UNK
  4. LYRICA [Concomitant]
     Dosage: 225 mg, UNK
  5. QUINAPRIL [Concomitant]
     Dosage: 20 mg, UNK
  6. SIMVASTATIN [Concomitant]
     Dosage: 40 mg, UNK
  7. METFORMIN [Concomitant]
     Dosage: 750 mg, UNK
  8. LEVOTHYROXIN [Concomitant]
     Dosage: 0.075 mg, UNK
  9. OMEGA 3                            /01334101/ [Concomitant]
     Dosage: 1200 mg, UNK
  10. ASPIRIN [Concomitant]
     Dosage: 81 mg, UNK

REACTIONS (1)
  - Psoriasis [Unknown]
